FAERS Safety Report 8139170-0 (Version None)
Quarter: 2012Q1

REPORT INFORMATION
  Report Type: 
  Country: None (occurrence: None)
  Receive Date: 20120215
  Receipt Date: 20120214
  Transmission Date: 20120608
  Serious: Yes (Other)
  Sender: FDA-Public Use
  Company Number: US-BAYER-2012-015052

PATIENT
  Sex: Female

DRUGS (2)
  1. YASMIN [Suspect]
     Dosage: UNK
     Dates: start: 20051101
  2. YAZ [Suspect]
     Dosage: UNK
     Dates: start: 20051101

REACTIONS (2)
  - PULMONARY EMBOLISM [None]
  - PAIN [None]
